FAERS Safety Report 19771531 (Version 1)
Quarter: 2021Q3

REPORT INFORMATION
  Report Type: Spontaneous
  Country: US (occurrence: US)
  Receive Date: 20210901
  Receipt Date: 20210901
  Transmission Date: 20211014
  Serious: Yes (Disabling)
  Sender: FDA-Public Use
  Company Number: None

PATIENT
  Age: 38 Year
  Sex: Female
  Weight: 58.95 kg

DRUGS (8)
  1. BUPROPION XL 300 MG QD [Concomitant]
  2. BUSPAR 30 MG BID [Concomitant]
  3. VITAMIN D 5000 IU QD [Concomitant]
  4. SINGULAIR [Suspect]
     Active Substance: MONTELUKAST SODIUM
     Indication: MULTIPLE ALLERGIES
     Dates: start: 20160315, end: 20210829
  5. CLARITIN 10 MG QD [Concomitant]
  6. FLONASE [Concomitant]
     Active Substance: FLUTICASONE PROPIONATE
  7. KETOTIFEN OPHTHALMIC [Concomitant]
     Active Substance: KETOTIFEN
  8. MAGNESIUM 400 MG Q HS [Concomitant]

REACTIONS (8)
  - Hallucination [None]
  - Agitation [None]
  - Depression [None]
  - Restlessness [None]
  - Anxiety [None]
  - Irritability [None]
  - Hostility [None]
  - Suicidal ideation [None]

NARRATIVE: CASE EVENT DATE: 20210830
